FAERS Safety Report 9740021 (Version 5)
Quarter: 2014Q1

REPORT INFORMATION
  Report Type: Report from Study
  Country: US (occurrence: US)
  Receive Date: 20131209
  Receipt Date: 20140206
  Transmission Date: 20141002
  Serious: Yes (Hospitalization)
  Sender: FDA-Public Use
  Company Number: US-ACTELION-A-US2013-91481

PATIENT
  Age: 69 Year
  Sex: Female

DRUGS (2)
  1. VELETRI [Suspect]
     Indication: PULMONARY ARTERIAL HYPERTENSION
     Dosage: 39 NG/KG, PER MIN
     Route: 042
     Dates: start: 20110826
  2. SILDENAFIL [Concomitant]

REACTIONS (5)
  - Urinary tract infection [Unknown]
  - Pneumonia [Unknown]
  - Cardiac failure [Unknown]
  - Dyspnoea [Unknown]
  - Pleural effusion [Unknown]
